FAERS Safety Report 6196511-1 (Version None)
Quarter: 2009Q2

REPORT INFORMATION
  Report Type: 
  Country: None (occurrence: None)
  Receive Date: 20090520
  Receipt Date: 20080428
  Transmission Date: 20091009
  Serious: No
  Sender: FDA-Public Use
  Company Number: US-ABBOTT-08P-163-0449650-00

PATIENT
  Sex: Male

DRUGS (9)
  1. ZEMPLAR [Suspect]
     Indication: HYPERPARATHYROIDISM SECONDARY
     Dosage: 3 MCG QW
     Route: 048
     Dates: start: 20080124, end: 20080327
  2. CALCIUM CARBONATE [Concomitant]
     Indication: ABDOMINAL DISCOMFORT
     Route: 048
     Dates: start: 20070301
  3. CALCIUM ACETATE [Concomitant]
     Indication: DRUG USE FOR UNKNOWN INDICATION
     Dosage: 1 TAB QD
     Dates: start: 20071001
  4. AMLODIPINE [Concomitant]
     Indication: HYPERTENSION
     Dosage: 10 MG DAILY
     Route: 048
     Dates: start: 20070101
  5. LISINOPRIL [Concomitant]
     Indication: HYPERTENSION
     Dosage: 20 MG DAILY, 10 MG BID
     Route: 048
     Dates: start: 20060301
  6. DAPSONE [Concomitant]
     Indication: RASH
     Dosage: 100MG DAILY
     Route: 048
     Dates: start: 20060301
  7. NEPHROCAPS [Concomitant]
     Indication: VITAMIN SUPPLEMENTATION
     Dosage: 1 TABLET DAILY
     Route: 048
     Dates: start: 20060301
  8. ATENOLOL [Concomitant]
     Indication: HYPERTENSION
     Dosage: 150 MG DAILY, 50 MG TID
     Route: 048
     Dates: start: 20060301
  9. MORNIFLUMATE [Concomitant]
     Indication: PROSTATIC DISORDER
     Dosage: 0.4MG DAILY
     Route: 048
     Dates: start: 20060301

REACTIONS (1)
  - MUSCLE SPASMS [None]
